FAERS Safety Report 4855378-1 (Version None)
Quarter: 2005Q4

REPORT INFORMATION
  Report Type: 
  Country: None (occurrence: None)
  Receive Date: 20051125
  Receipt Date: 20041130
  Transmission Date: 20060501
  Serious: Yes (Other)
  Sender: FDA-Public Use
  Company Number: US-JNJFOC-20041200416

PATIENT
  Age: 71 Year
  Sex: Female
  Weight: 99.7913 kg

DRUGS (11)
  1. LEVAQUIN [Suspect]
     Indication: DRUG USE FOR UNKNOWN INDICATION
     Dosage: 250 MG, 1 IN 1 DAY
     Dates: start: 20041128, end: 20041129
  2. PLAVIX [Concomitant]
  3. POTASSIUM [Concomitant]
  4. ADVAIR DISKUS 100/50 [Concomitant]
  5. FOLIC ACID [Concomitant]
  6. FLONASE [Concomitant]
  7. ALBUTEROL [Concomitant]
  8. ASPIRIN [Concomitant]
  9. AVAPRO [Concomitant]
  10. ZOCOR [Concomitant]
  11. ATROVENT [Concomitant]

REACTIONS (1)
  - BLOOD GLUCOSE DECREASED [None]
